FAERS Safety Report 9850634 (Version 1)
Quarter: 2013Q4

REPORT INFORMATION
  Report Type: Spontaneous
  Country: US (occurrence: None)
  Receive Date: 20131226
  Receipt Date: 20131226
  Transmission Date: 20140711
  Serious: Yes (Other)
  Sender: FDA-Public Use
  Company Number: PHEH2013US011131

PATIENT
  Age: 78 Year
  Sex: Female

DRUGS (6)
  1. DIOVAN [Suspect]
     Dosage: 1 DF (160MG), DAILY
     Dates: start: 2005
  2. VITAMIN D (ERGOCALCIFEROL) [Concomitant]
  3. METHOTREXATE (METHOTREXATE) TABLET [Concomitant]
  4. CALCITRIOL (CALCITRIOL) (CALCITRIOL) [Concomitant]
  5. PREDNISONE (PREDNISONE) [Concomitant]
  6. NORVASC (AMLODIPINE DESILATE) [Concomitant]

REACTIONS (3)
  - Renal failure [None]
  - Movement disorder [None]
  - General physical condition abnormal [None]
